FAERS Safety Report 19978548 (Version 1)
Quarter: 2021Q4

REPORT INFORMATION
  Report Type: Spontaneous
  Country: US (occurrence: US)
  Receive Date: 20211020
  Receipt Date: 20211020
  Transmission Date: 20220303
  Serious: Yes (Other)
  Sender: FDA-Public Use
  Company Number: US-GSKCCFUS-CASE-01191228_AE-69716

PATIENT
  Age: 88 Year
  Sex: Female

DRUGS (2)
  1. TRELEGY ELLIPTA [Suspect]
     Active Substance: FLUTICASONE FUROATE\UMECLIDINIUM BROMIDE\VILANTEROL TRIFENATATE
     Indication: Dyspnoea
     Dosage: 1 PUFF(S), QD , 100/62.5/25MCG
     Route: 055
     Dates: start: 20211012
  2. CIPRO [Concomitant]
     Active Substance: CIPROFLOXACIN HYDROCHLORIDE
     Indication: Product used for unknown indication
     Dosage: UNK

REACTIONS (11)
  - Paralysis [Unknown]
  - Pain [Not Recovered/Not Resolved]
  - Ligament sprain [Unknown]
  - Muscle spasms [Not Recovered/Not Resolved]
  - Joint range of motion decreased [Unknown]
  - Dysstasia [Unknown]
  - Joint swelling [Unknown]
  - Peripheral swelling [Unknown]
  - Pain in extremity [Unknown]
  - Off label use [Unknown]
  - Walking aid user [Unknown]

NARRATIVE: CASE EVENT DATE: 20211012
